FAERS Safety Report 4366186-2 (Version None)
Quarter: 2004Q2

REPORT INFORMATION
  Report Type: 
  Country: None (occurrence: None)
  Receive Date: 20040527
  Receipt Date: 20040518
  Transmission Date: 20050107
  Serious: Yes (Other)
  Sender: FDA-Public Use
  Company Number: AU-JNJFOC-20040401481

PATIENT
  Age: 40 Year
  Sex: Female

DRUGS (2)
  1. NIZORAL [Suspect]
     Dosage: ^INTERMITTENT ONLY IN THE PREVIOUS TWELVE MONTHS^
     Route: 049
  2. CORTICOSTEROID [Concomitant]
     Indication: ASTHMA
     Route: 055

REACTIONS (2)
  - CONGENITAL HYDROCEPHALUS [None]
  - HYDROCEPHALUS [None]
